FAERS Safety Report 23014051 (Version 2)
Quarter: 2023Q4

REPORT INFORMATION
  Report Type: Report from Study
  Country: US (occurrence: US)
  Receive Date: 20231002
  Receipt Date: 20231219
  Transmission Date: 20240109
  Serious: Yes (Other)
  Sender: FDA-Public Use
  Company Number: US-ABBVIE-5337805

PATIENT
  Sex: Male
  Weight: 118 kg

DRUGS (3)
  1. VENCLEXTA [Suspect]
     Active Substance: VENETOCLAX
     Indication: Lymphocytic leukaemia
     Route: 048
     Dates: start: 20200213, end: 202007
  2. VENCLEXTA [Suspect]
     Active Substance: VENETOCLAX
     Indication: Lymphocytic leukaemia
     Dosage: DOSE: 2 PILLS 100 MG PER DAY?START DATE: 2023
     Route: 048
  3. VENCLEXTA [Suspect]
     Active Substance: VENETOCLAX
     Indication: Lymphocytic leukaemia
     Dosage: STRENGTH- 100 MG?LAST ADMIN DATE: 2023
     Route: 048
     Dates: start: 20230720

REACTIONS (11)
  - Chronic lymphocytic leukaemia [Unknown]
  - Haemoglobin decreased [Unknown]
  - Renal impairment [Unknown]
  - Infection [Unknown]
  - White blood cell count decreased [Unknown]
  - Asthenia [Not Recovered/Not Resolved]
  - Cholecystectomy [Unknown]
  - Fournier^s gangrene [Unknown]
  - Gait inability [Recovering/Resolving]
  - Full blood count decreased [Unknown]
  - Blood glucose increased [Unknown]

NARRATIVE: CASE EVENT DATE: 20200101
